FAERS Safety Report 21526419 (Version 1)
Quarter: 2022Q4

REPORT INFORMATION
  Report Type: Spontaneous
  Country: US (occurrence: US)
  Receive Date: 20221031
  Receipt Date: 20221031
  Transmission Date: 20230113
  Serious: Yes (Other)
  Sender: FDA-Public Use
  Company Number: US-UCBSA-2022021947

PATIENT
  Age: 61 Year
  Sex: Female

DRUGS (1)
  1. VIMPAT [Suspect]
     Active Substance: LACOSAMIDE
     Indication: Partial seizures
     Dosage: 600MG A DAY

REACTIONS (4)
  - Seizure [Unknown]
  - Somnolence [Unknown]
  - Drug ineffective [Unknown]
  - Overdose [Unknown]
